FAERS Safety Report 8521209-1 (Version None)
Quarter: 2012Q3

REPORT INFORMATION
  Report Type: 
  Country: None (occurrence: None)
  Receive Date: 20120719
  Receipt Date: 20120712
  Transmission Date: 20120928
  Serious: Yes (Hospitalization)
  Sender: FDA-Public Use
  Company Number: FR-009507513-1207FRA003301

PATIENT

DRUGS (8)
  1. REBETOL [Suspect]
     Indication: HEPATITIS C
     Dosage: 1000 MG, QD
     Dates: start: 20110324
  2. NEORECORMON [Concomitant]
     Indication: ANAEMIA
     Dosage: 60000 UNK, UNK
     Dates: start: 20110507
  3. NEORECORMON [Concomitant]
     Dosage: 30000 IU, UNK
  4. VICTRELIS [Suspect]
     Indication: HEPATITIS C
     Dosage: 800 MG, TID
     Dates: start: 20110421
  5. SECTRAL [Concomitant]
     Indication: HYPERTENSION
     Dosage: 1 DF, QD
     Dates: start: 19900101
  6. VIRAFERONPEG [Suspect]
     Indication: HEPATITIS C
     Dosage: 1.5 MICROGRAM PER KILOGRAM, QW
     Dates: start: 20110324
  7. NEORECORMON [Concomitant]
     Dosage: 60000 IU, UNK
     Dates: start: 20110713
  8. AMLODIPINE BESYLATE [Concomitant]
     Indication: HYPERTENSION
     Dosage: 1 DF, UNK
     Dates: start: 19900101

REACTIONS (1)
  - ANAEMIA [None]
